FAERS Safety Report 15375034 (Version 3)
Quarter: 2018Q4

REPORT INFORMATION
  Report Type: Spontaneous
  Country: US (occurrence: US)
  Receive Date: 20180912
  Receipt Date: 20181116
  Transmission Date: 20190204
  Serious: No
  Sender: FDA-Public Use
  Company Number: US-BAUSCH-BL-2018-024998

PATIENT
  Age: 68 Year
  Sex: Female
  Weight: 58.11 kg

DRUGS (1)
  1. LUMIFY [Suspect]
     Active Substance: BRIMONIDINE TARTRATE
     Indication: OCULAR HYPERAEMIA
     Dosage: SECOND DAY- ONE DROP IN BOTH EYES ONLY FOR ONE TIME
     Route: 047

REACTIONS (1)
  - Drug ineffective [Recovered/Resolved]
